FAERS Safety Report 6796409-1 (Version None)
Quarter: 2010Q2

REPORT INFORMATION
  Report Type: 
  Country: None (occurrence: None)
  Receive Date: 20100626
  Receipt Date: 20100615
  Transmission Date: 20101027
  Serious: Yes (Other)
  Sender: FDA-Public Use
  Company Number: BR-ABBOTT-09P-020-0614604-00

PATIENT
  Sex: Female
  Weight: 61.5 kg

DRUGS (9)
  1. HUMIRA [Suspect]
     Indication: PSORIATIC ARTHROPATHY
     Route: 058
     Dates: start: 20070101
  2. HUMIRA [Suspect]
     Dates: start: 20090301, end: 20090301
  3. HUMIRA [Suspect]
  4. LEFLUNOMIDE [Suspect]
     Indication: PSORIATIC ARTHROPATHY
     Route: 048
  5. METHOTREXATE [Concomitant]
     Indication: PSORIATIC ARTHROPATHY
     Route: 048
  6. THARMASIA (?) [Concomitant]
     Indication: PSORIATIC ARTHROPATHY
     Route: 048
     Dates: start: 19890101
  7. OMEPRAZOLE [Concomitant]
     Indication: DRUG USE FOR UNKNOWN INDICATION
     Route: 048
     Dates: start: 20090601
  8. PROPRANOLOL [Concomitant]
     Indication: HYPERTENSION
     Route: 048
     Dates: start: 19990101
  9. UNKNOWN MAGISTRAL FORMULA [Concomitant]
     Indication: PSORIATIC ARTHROPATHY
     Route: 048

REACTIONS (15)
  - ALOPECIA [None]
  - ARTHRALGIA [None]
  - HAEMORRHAGE [None]
  - HYPERTENSION [None]
  - HYPOTENSION [None]
  - INJECTION SITE ERYTHEMA [None]
  - INJECTION SITE PAIN [None]
  - INJECTION SITE PRURITUS [None]
  - KNEE DEFORMITY [None]
  - NECK MASS [None]
  - PAIN [None]
  - RASH MACULAR [None]
  - SWELLING [None]
  - SYNCOPE [None]
  - VISUAL IMPAIRMENT [None]
